FAERS Safety Report 13034817 (Version 2)
Quarter: 2017Q2

REPORT INFORMATION
  Report Type: Report from Study
  Country: IT (occurrence: IT)
  Receive Date: 20161216
  Receipt Date: 20170612
  Transmission Date: 20170830
  Serious: Yes (Death, Other)
  Sender: FDA-Public Use
  Company Number: IT-AMGEN-ITACT2016177711

PATIENT
  Age: 66 Year
  Sex: Male
  Weight: 80 kg

DRUGS (20)
  1. DILTIAZEM. [Concomitant]
     Active Substance: DILTIAZEM
     Indication: MYOCARDIAL ISCHAEMIA
     Dosage: 90 MG, TID
     Route: 048
     Dates: start: 20160604
  2. FUROSEMIDE. [Concomitant]
     Active Substance: FUROSEMIDE
     Indication: PROPHYLAXIS
  3. CARFILZOMIB [Suspect]
     Active Substance: CARFILZOMIB
     Dosage: 57 MG, PER CHEMO REGIM
     Route: 042
  4. BENDAMUSTINE [Concomitant]
     Active Substance: BENDAMUSTINE
     Dosage: 119 MG, PER CHEMO REGIM
     Route: 042
  5. FUROSEMIDE. [Concomitant]
     Active Substance: FUROSEMIDE
     Indication: HYPERTENSION
     Dosage: 25 MG, QD AS NECESSARY
     Route: 048
     Dates: start: 20160727
  6. RIOPAN [Concomitant]
     Active Substance: MAGALDRATE
     Indication: GASTRITIS
     Dosage: 1600 MG, BID
     Route: 048
     Dates: start: 20160824
  7. LAMIVUDINE. [Concomitant]
     Active Substance: LAMIVUDINE
     Indication: INFECTION PROPHYLAXIS
     Dosage: 100 MG, QD
     Route: 048
  8. MOVICOL [Concomitant]
     Active Substance: POLYETHYLENE GLYCOL 3350\POTASSIUM CHLORIDE\SODIUM BICARBONATE\SODIUM CHLORIDE
     Indication: CONSTIPATION
     Dosage: 2 SACHETS, TID
     Route: 048
  9. CARFILZOMIB [Suspect]
     Active Substance: CARFILZOMIB
     Indication: PLASMA CELL MYELOMA
     Dosage: 43 MG, PER CHEMO REGIM
     Route: 042
     Dates: start: 20160525, end: 20161209
  10. OMEPRAZOLE. [Concomitant]
     Active Substance: OMEPRAZOLE
     Indication: GASTRITIS
     Dosage: 40 MG, BID
     Route: 048
  11. PRAZEPAM [Concomitant]
     Active Substance: PRAZEPAM
     Indication: ANXIETY
     Dosage: 5 MG, QD
     Route: 048
  12. TRITTICO [Concomitant]
     Active Substance: TRAZODONE HYDROCHLORIDE
     Indication: ANXIETY
     Dosage: 2/3 PILLS, QD
     Route: 048
  13. EPOETIN ALFA [Concomitant]
     Active Substance: ERYTHROPOIETIN
     Indication: ANAEMIA
     Dosage: 40000 IU, QWK
     Route: 048
     Dates: start: 20160817
  14. BENDAMUSTINE [Concomitant]
     Active Substance: BENDAMUSTINE
     Indication: PLASMA CELL MYELOMA
     Dosage: 149 MG, PER CHEMO REGIM
     Route: 042
     Dates: start: 20160525, end: 20161201
  15. DEXAMETHASONE. [Concomitant]
     Active Substance: DEXAMETHASONE
     Indication: PLASMA CELL MYELOMA
     Dosage: 20 MG, PER CHEMO REGIM
     Route: 042
     Dates: start: 20160525, end: 20161209
  16. ENALAPRIL [Concomitant]
     Active Substance: ENALAPRIL
     Indication: HYPERTENSION
     Dosage: 10 MG, QD
     Route: 048
     Dates: start: 20160720
  17. ACYCLOVIR. [Concomitant]
     Active Substance: ACYCLOVIR
     Indication: INFECTION PROPHYLAXIS
     Dosage: 1600 MG, BID
     Route: 048
  18. ACETYLSALICYLIC ACID [Concomitant]
     Active Substance: ASPIRIN
     Indication: MYOCARDIAL ISCHAEMIA
     Dosage: 100 MG, QD
     Route: 048
     Dates: start: 20160601
  19. BACTRIM [Concomitant]
     Active Substance: SULFAMETHOXAZOLE\TRIMETHOPRIM
     Indication: INFECTION PROPHYLAXIS
     Dosage: UNK, 3 TIMES/WK
  20. TRITTICO [Concomitant]
     Active Substance: TRAZODONE HYDROCHLORIDE
     Indication: MOOD ALTERED

REACTIONS (1)
  - Sudden death [Fatal]

NARRATIVE: CASE EVENT DATE: 20161213
